FAERS Safety Report 19086169 (Version 2)
Quarter: 2021Q3

REPORT INFORMATION
  Report Type: Spontaneous
  Country: US (occurrence: US)
  Receive Date: 20210402
  Receipt Date: 20210816
  Transmission Date: 20211014
  Serious: Yes (Life-Threatening, Hospitalization, Other)
  Sender: FDA-Public Use
  Company Number: US-PFIZER INC-2021313725

PATIENT
  Age: 67 Year
  Sex: Male
  Weight: 106.14 kg

DRUGS (3)
  1. INLYTA [Suspect]
     Active Substance: AXITINIB
     Dosage: 5 MG, 2X/DAY
     Dates: start: 20200709, end: 202009
  2. INLYTA [Suspect]
     Active Substance: AXITINIB
     Indication: RENAL CANCER STAGE IV
     Dosage: UNK
     Dates: start: 202005
  3. PEMBROLIZUMAB. [Concomitant]
     Active Substance: PEMBROLIZUMAB
     Dosage: UNK
     Dates: start: 20200709, end: 20210602

REACTIONS (19)
  - Delusion [Unknown]
  - Peripheral swelling [Unknown]
  - Brain oedema [Recovered/Resolved]
  - Loss of personal independence in daily activities [Recovering/Resolving]
  - Somnolence [Unknown]
  - Posterior reversible encephalopathy syndrome [Recovered/Resolved]
  - Hypertension [Recovered/Resolved]
  - Abdominal discomfort [Recovered/Resolved]
  - Clostridium difficile infection [Unknown]
  - Seizure [Recovered/Resolved]
  - Sepsis [Recovered/Resolved]
  - Dyspnoea [Recovered/Resolved]
  - Lower respiratory tract infection bacterial [Recovered/Resolved]
  - Memory impairment [Not Recovered/Not Resolved]
  - Diarrhoea [Recovered/Resolved]
  - Bacteraemia [Unknown]
  - Feeling abnormal [Unknown]
  - Confusional state [Unknown]
  - Localised infection [Unknown]

NARRATIVE: CASE EVENT DATE: 2020
